APPROVED DRUG PRODUCT: AMZEEQ
Active Ingredient: MINOCYCLINE HYDROCHLORIDE
Strength: EQ 4% BASE
Dosage Form/Route: AEROSOL, FOAM;TOPICAL
Application: N212379 | Product #001
Applicant: JOURNEY MEDICAL CORP
Approved: Oct 18, 2019 | RLD: Yes | RS: Yes | Type: RX

PATENTS:
Patent 10137200 | Expires: Oct 1, 2030
Patent 8865139 | Expires: Oct 1, 2030
Patent 10398641 | Expires: Sep 8, 2037
Patent 9675700 | Expires: Oct 1, 2030
Patent 8992896 | Expires: Oct 1, 2030
Patent 10086080 | Expires: Oct 1, 2030
Patent 10213512 | Expires: Oct 1, 2030
Patent 10517882 | Expires: Oct 1, 2030
Patent 10849847 | Expires: Sep 8, 2037
Patent 10821187 | Expires: Oct 1, 2030
Patent 8945516 | Expires: Oct 1, 2030
Patent 10265404 | Expires: Oct 1, 2030